FAERS Safety Report 9987371 (Version 1)
Quarter: 2014Q1

REPORT INFORMATION
  Report Type: Spontaneous
  Country: US (occurrence: US)
  Receive Date: 20140307
  Receipt Date: 20140307
  Transmission Date: 20141002
  Serious: No
  Sender: FDA-Public Use
  Company Number: US-AMGEN-USASP2014008591

PATIENT
  Age: 33 Year
  Sex: Male

DRUGS (4)
  1. ENBREL [Suspect]
     Indication: RHEUMATOID ARTHRITIS
     Dosage: 50 MG, QWK
     Route: 065
     Dates: start: 20081027
  2. METHOTREXATE [Suspect]
     Indication: RHEUMATOID ARTHRITIS
     Dosage: 10 ML, QWK
     Route: 065
     Dates: start: 201201, end: 201206
  3. HUMIRA [Concomitant]
     Dosage: UNK UNK, Q2WK
  4. SIMPONI [Concomitant]
     Dosage: UNK

REACTIONS (4)
  - Rheumatoid arthritis [Recovered/Resolved]
  - Hepatic enzyme increased [Recovered/Resolved]
  - Pain [Recovered/Resolved]
  - Arthropathy [Recovered/Resolved]
